FAERS Safety Report 9293408 (Version 1)
Quarter: 2013Q2

REPORT INFORMATION
  Report Type: Spontaneous
  Country: GB (occurrence: GB)
  Receive Date: 20130517
  Receipt Date: 20130517
  Transmission Date: 20140414
  Serious: Yes (Death, Other)
  Sender: FDA-Public Use
  Company Number: GB-009507513-1305GBR009819

PATIENT
  Sex: 0

DRUGS (8)
  1. DEXAMETHASONE [Suspect]
     Indication: ACUTE LYMPHOCYTIC LEUKAEMIA
     Dosage: 10 MG/M2, UNK
     Route: 048
  2. ASPARAGINASE [Concomitant]
  3. VINCRISTINE SULFATE [Concomitant]
  4. DOXORUBICIN [Concomitant]
     Dosage: UNK
  5. CYCLOPHOSPHAMIDE [Concomitant]
     Dosage: UNK
  6. CYTARABINE [Concomitant]
  7. METHOTREXATE [Concomitant]
  8. MERCAPTOPURINE [Concomitant]

REACTIONS (1)
  - Toxicity to various agents [Fatal]
